FAERS Safety Report 5186958-4 (Version None)
Quarter: 2006Q4

REPORT INFORMATION
  Report Type: 
  Country: None (occurrence: None)
  Receive Date: 20061213
  Receipt Date: 20061201
  Transmission Date: 20070319
  Serious: Yes (Other)
  Sender: FDA-Public Use
  Company Number: 2006129489

PATIENT
  Age: 50 Year
  Sex: Female
  Weight: 51.2565 kg

DRUGS (1)
  1. CHANTIX [Suspect]
     Indication: NICOTINE DEPENDENCE
     Dosage: 2 MG (1 MG, 2 IN 1 D), ORAL
     Route: 048
     Dates: start: 20060919, end: 20061007

REACTIONS (3)
  - INFLUENZA [None]
  - PRURITUS [None]
  - RASH MACULAR [None]
